FAERS Safety Report 18064077 (Version 1)
Quarter: 2020Q3

REPORT INFORMATION
  Report Type: Spontaneous
  Country: SE (occurrence: SE)
  Receive Date: 20200724
  Receipt Date: 20200724
  Transmission Date: 20201103
  Serious: Yes (Other)
  Sender: FDA-Public Use
  Company Number: SE-SUN PHARMACEUTICAL INDUSTRIES LTD-2020R1-253785

PATIENT
  Sex: Female
  Weight: 2.68 kg

DRUGS (4)
  1. LABETALOL [Suspect]
     Active Substance: LABETALOL\LABETALOL HYDROCHLORIDE
     Indication: HYPERTENSION
     Dosage: UNK
     Route: 064
  2. PARACETAMOL [Suspect]
     Active Substance: ACETAMINOPHEN
     Indication: HEADACHE
     Dosage: UNK
     Route: 064
  3. CEFUROXIME. [Suspect]
     Active Substance: CEFUROXIME
     Indication: ANTIBIOTIC PROPHYLAXIS
     Dosage: UNK (1.5 G)
     Route: 064
  4. NIFEDIPINE. [Suspect]
     Active Substance: NIFEDIPINE
     Indication: HYPERTENSION
     Dosage: UNK
     Route: 064

REACTIONS (2)
  - Dyspnoea [Recovered/Resolved]
  - Foetal exposure during pregnancy [Unknown]
